FAERS Safety Report 9588560 (Version 2)
Quarter: 2013Q4

REPORT INFORMATION
  Report Type: Spontaneous
  Country: US (occurrence: US)
  Receive Date: 20131003
  Receipt Date: 20131003
  Transmission Date: 20140711
  Serious: No
  Sender: FDA-Public Use
  Company Number: US-AMGEN-USASP2012063468

PATIENT
  Age: 11 Year
  Sex: Female
  Weight: 34.2 kg

DRUGS (2)
  1. ENBREL [Suspect]
     Indication: JUVENILE IDIOPATHIC ARTHRITIS
     Dosage: 25 MG, QWK
     Route: 058
     Dates: start: 20120720, end: 20120801
  2. NAPROXEN [Concomitant]
     Indication: ARTHRITIS
     Dosage: 300 MG, QD
     Route: 048
     Dates: start: 20120404

REACTIONS (4)
  - Headache [Not Recovered/Not Resolved]
  - Contusion [Unknown]
  - Injection site bruising [Recovered/Resolved]
  - Injection site pain [Recovering/Resolving]
